FAERS Safety Report 11866352 (Version 1)
Quarter: 2015Q4

REPORT INFORMATION
  Report Type: Spontaneous
  Country: PT (occurrence: PT)
  Receive Date: 20151223
  Receipt Date: 20151223
  Transmission Date: 20160305
  Serious: Yes (Other)
  Sender: FDA-Public Use
  Company Number: PT-GILEAD-2015-0189224

PATIENT
  Age: 43 Year
  Sex: Male

DRUGS (4)
  1. ATAZANAVIR [Concomitant]
     Active Substance: ATAZANAVIR
     Indication: HIV INFECTION
     Route: 048
     Dates: start: 20151011
  2. RITONAVIR. [Concomitant]
     Active Substance: RITONAVIR
     Indication: HIV INFECTION
     Route: 048
     Dates: start: 20151011
  3. TRUVADA [Suspect]
     Active Substance: EMTRICITABINE\TENOFOVIR DISOPROXIL FUMARATE
     Indication: HIV INFECTION
     Dosage: 1 DF, QD
     Route: 048
     Dates: start: 20151011, end: 20151203
  4. SULFAMETOXAZOL + TRIMETOPRIMA [Concomitant]
     Route: 048

REACTIONS (6)
  - Pruritus [Unknown]
  - Mood swings [Unknown]
  - Paraesthesia [Unknown]
  - Oedema peripheral [Unknown]
  - Dysgeusia [Unknown]
  - Nausea [Unknown]

NARRATIVE: CASE EVENT DATE: 201510
